FAERS Safety Report 11122967 (Version 1)
Quarter: 2015Q2

REPORT INFORMATION
  Report Type: Spontaneous
  Country: US (occurrence: US)
  Receive Date: 20150519
  Receipt Date: 20150519
  Transmission Date: 20150821
  Serious: Yes (Other)
  Sender: FDA-Public Use
  Company Number: US-BRISTOL-MYERS SQUIBB COMPANY-BMS-2015-030126

PATIENT
  Age: 22 Year
  Sex: Male

DRUGS (6)
  1. ALEVE [Concomitant]
     Active Substance: NAPROXEN SODIUM
     Indication: PRODUCT USED FOR UNKNOWN INDICATION
     Route: 065
  2. KENALOG-40 [Suspect]
     Active Substance: TRIAMCINOLONE ACETONIDE
     Dosage: 40 MG, UNK
     Route: 065
     Dates: start: 20150128, end: 20150128
  3. KENALOG-40 [Suspect]
     Active Substance: TRIAMCINOLONE ACETONIDE
     Indication: SURGERY
     Dosage: 40 MG, UNK
     Route: 065
     Dates: start: 20141023, end: 20141023
  4. KENALOG-40 [Suspect]
     Active Substance: TRIAMCINOLONE ACETONIDE
     Indication: INJURY
     Dosage: 40 MG, UNK
     Route: 065
     Dates: start: 20141210, end: 20141210
  5. KENALOG-40 [Suspect]
     Active Substance: TRIAMCINOLONE ACETONIDE
     Dosage: 40 MG, UNK
     Route: 065
     Dates: start: 20150205, end: 20150205
  6. KENALOG-40 [Suspect]
     Active Substance: TRIAMCINOLONE ACETONIDE
     Dosage: 40 MG, UNK
     Route: 065
     Dates: start: 20150318, end: 20150318

REACTIONS (2)
  - Adrenal suppression [Unknown]
  - Hypopituitarism [Unknown]

NARRATIVE: CASE EVENT DATE: 201412
